FAERS Safety Report 14366532 (Version 1)
Quarter: 2018Q1

REPORT INFORMATION
  Report Type: Spontaneous
  Country: US (occurrence: US)
  Receive Date: 20180108
  Receipt Date: 20180108
  Transmission Date: 20180509
  Serious: No
  Sender: FDA-Public Use
  Company Number: None

PATIENT
  Age: 59 Year
  Sex: Male
  Weight: 163.3 kg

DRUGS (1)
  1. DAPTOMYCIN 500MG POWDER VIAL HOSPIRA [Suspect]
     Active Substance: DAPTOMYCIN
     Indication: CELLULITIS
     Dosage: 1000 MG/20 MLS NS Q48 HOURS IVPUSH
     Route: 042
     Dates: start: 20171227, end: 20171229

REACTIONS (4)
  - Chills [None]
  - Tremor [None]
  - Wrong technique in product usage process [None]
  - Therapy change [None]

NARRATIVE: CASE EVENT DATE: 20171227
